FAERS Safety Report 6015497-3 (Version None)
Quarter: 2008Q4

REPORT INFORMATION
  Report Type: 
  Country: None (occurrence: None)
  Receive Date: 20081218
  Receipt Date: 20081203
  Transmission Date: 20090506
  Serious: Yes (Other)
  Sender: FDA-Public Use
  Company Number: PHHY2008JP30693

PATIENT
  Age: 78 Year
  Sex: Male

DRUGS (1)
  1. VISUDYNE [Suspect]
     Indication: POLYPOIDAL CHOROIDAL VASCULOPATHY

REACTIONS (2)
  - RETINAL EXUDATES [None]
  - RETINAL HAEMORRHAGE [None]
